FAERS Safety Report 20161929 (Version 3)
Quarter: 2023Q4

REPORT INFORMATION
  Report Type: Spontaneous
  Country: FR (occurrence: FR)
  Receive Date: 20211208
  Receipt Date: 20231009
  Transmission Date: 20240110
  Serious: Yes (Other)
  Sender: FDA-Public Use
  Company Number: FR-COOPERFR-202100096

PATIENT
  Age: 39 Year
  Sex: Female
  Weight: 100 kg

DRUGS (8)
  1. TOPIRAMATE [Suspect]
     Active Substance: TOPIRAMATE
     Indication: Headache
     Dosage: 50 MG TWICE A DAY (MORNING AND EVENING).PLANNED TO BE WITHDRAWN
     Route: 048
     Dates: start: 202009
  2. DIAMOX SEQUELS [Suspect]
     Active Substance: ACETAZOLAMIDE
     Indication: Idiopathic intracranial hypertension
     Dosage: DOSAGE DECREASED TO 5 TABLETS TWICE A DAY
     Route: 048
     Dates: start: 202009, end: 202011
  3. DIAMOX SEQUELS [Suspect]
     Active Substance: ACETAZOLAMIDE
     Dosage: PROGRESSIVE DOSAGE INCREASE (OVER TWO MONTHS) UP TO 1G TWICE A DAY (4 TABLETS TWICE A DAY)
     Route: 048
     Dates: start: 202001, end: 202008
  4. DIAMOX SEQUELS [Suspect]
     Active Substance: ACETAZOLAMIDE
     Dosage: DOSAGE DECREASED TO 1 TABLET PER MONTH
     Route: 048
     Dates: start: 20210309
  5. DIAMOX SEQUELS [Suspect]
     Active Substance: ACETAZOLAMIDE
     Dosage: DOSAGE DECREASED TO 4 TABLETS TWICE A DAY
     Route: 048
     Dates: start: 202011, end: 202102
  6. DIAMOX SEQUELS [Suspect]
     Active Substance: ACETAZOLAMIDE
     Dosage: DOSAGE DECREASED TO 2 TABLETS TWICE A DAY - ONGOING DECREASE IN DOSAGE UNTIL WEANING
     Route: 048
     Dates: start: 202102
  7. DIAMOX SEQUELS [Suspect]
     Active Substance: ACETAZOLAMIDE
     Dosage: DOSAGE INCREASED TO 1.5G TWICE A DAY (6 TABLETS TWICE A DAY)
     Route: 048
     Dates: start: 202008, end: 202009
  8. POTASSIUM CHLORIDE [Suspect]
     Active Substance: POTASSIUM CHLORIDE
     Indication: Metabolic disorder prophylaxis
     Dosage: TWICE A DAY
     Route: 065
     Dates: start: 202001

REACTIONS (5)
  - Bradycardia [Not Recovered/Not Resolved]
  - Intentional product use issue [Unknown]
  - Paraesthesia [Not Recovered/Not Resolved]
  - Intentional overdose [Unknown]
  - Dyspnoea exertional [Not Recovered/Not Resolved]

NARRATIVE: CASE EVENT DATE: 20200101
